FAERS Safety Report 8788870 (Version 2)
Quarter: 2013Q1

REPORT INFORMATION
  Report Type: Report from Study
  Country: JP (occurrence: JP)
  Receive Date: 20120916
  Receipt Date: 20130320
  Transmission Date: 20140127
  Serious: Yes (Other)
  Sender: FDA-Public Use
  Company Number: JP-009507513-1209JPN003870

PATIENT
  Age: 65 Year
  Sex: Male
  Weight: 85 kg

DRUGS (14)
  1. REBETOL [Suspect]
     Indication: CHRONIC HEPATITIS C
     Dosage: 200 MG, QD
     Route: 048
  2. PEGINTRON [Suspect]
     Indication: CHRONIC HEPATITIS C
     Dosage: 0.6 MICROGRAM PER KILOGRAM, QW
     Route: 058
  3. TELAVIC [Suspect]
     Indication: CHRONIC HEPATITIS C
     Dosage: 1500 MG, QD
     Route: 048
     Dates: start: 20120704, end: 20120705
  4. TELAVIC [Suspect]
     Dosage: 1000 MG, QD
     Route: 048
     Dates: start: 20120706
  5. TELAVIC [Suspect]
     Dosage: 500 MG, QD
     Route: 048
     Dates: start: 20120801, end: 20120916
  6. TELAVIC [Suspect]
     Dosage: 1000 MG, QD
     Route: 048
     Dates: start: 20120917, end: 20120925
  7. NEO-MINOPHAGEN C [Concomitant]
     Indication: CHRONIC HEPATITIS C
     Dosage: 40 ML, QD
     Route: 042
  8. ARGAMATE JELLY [Concomitant]
     Indication: RENAL IMPAIRMENT
     Dosage: 75 G, QD
     Route: 048
  9. ALDACTONE A [Concomitant]
     Indication: OEDEMA
     Dosage: 50 MG, QD
     Route: 048
  10. TENORMIN [Concomitant]
     Indication: HYPERTENSION
     Dosage: 25 MG, QD
     Route: 048
  11. NU-LOTAN TABLETS 25MG [Concomitant]
     Indication: HYPERTENSION
     Dosage: 25 MG, QD
     Route: 048
  12. BAYASPIRIN [Concomitant]
     Indication: HYPERTENSION
     Dosage: 100 MG, QD
     Route: 048
     Dates: end: 20120827
  13. NEORAL [Concomitant]
     Indication: LIVER TRANSPLANT
     Dosage: 20 MG, QD
     Route: 048
  14. MEDROL [Concomitant]
     Indication: LIVER TRANSPLANT
     Dosage: 2 MG, QD
     Route: 048
     Dates: start: 20120807

REACTIONS (2)
  - Rash [Recovering/Resolving]
  - Haemoglobin decreased [Unknown]
